FAERS Safety Report 5899508-1 (Version None)
Quarter: 2008Q3

REPORT INFORMATION
  Report Type: 
  Country: None (occurrence: None)
  Receive Date: 20080925
  Receipt Date: 20080925
  Transmission Date: 20090109
  Serious: Yes (Other)
  Sender: FDA-Public Use
  Company Number: None

PATIENT
  Sex: Female
  Weight: 56.246 kg

DRUGS (1)
  1. OXYCODONE HCL AND ACETAMINOPHEN [Suspect]
     Indication: BACK PAIN
     Dosage: 5MG - 325MG 1-2 TABS  PO 4-6 HR PRN PAIN
     Dates: start: 20080922

REACTIONS (2)
  - NAUSEA [None]
  - VOMITING [None]
